FAERS Safety Report 4893465-2 (Version None)
Quarter: 2006Q1

REPORT INFORMATION
  Report Type: 
  Country: None (occurrence: None)
  Receive Date: 20060127
  Receipt Date: 20041216
  Transmission Date: 20060701
  Serious: No
  Sender: FDA-Public Use
  Company Number: US-BRISTOL-MYERS SQUIBB COMPANY-12798351

PATIENT
  Age: 41 Year
  Sex: Female

DRUGS (7)
  1. KENALOG-10 [Suspect]
     Indication: ECZEMA
     Dosage: NUMBER OF DOSES: A SERIES OF INTRALESIONAL INJECTIONS.
     Route: 026
     Dates: start: 20020429, end: 20020429
  2. DIPROLENE [Concomitant]
  3. PREMPHASE 14/14 [Concomitant]
  4. INDERAL [Concomitant]
  5. ASPIRIN [Concomitant]
  6. DETROL [Concomitant]
  7. PROTOPIC [Concomitant]

REACTIONS (1)
  - TENDON RUPTURE [None]
